FAERS Safety Report 9916977 (Version 1)
Quarter: 2014Q1

REPORT INFORMATION
  Report Type: Spontaneous
  Country: US (occurrence: US)
  Receive Date: 20140221
  Receipt Date: 20140221
  Transmission Date: 20141002
  Serious: Yes (Other)
  Sender: FDA-Public Use
  Company Number: US-BAYER-2014-024115

PATIENT
  Sex: Female

DRUGS (12)
  1. BETASERON [Suspect]
     Dosage: 0.25 MG, QOD
     Route: 058
     Dates: end: 201108
  2. XANAX [Concomitant]
     Dosage: 0.5 MG, UNK
  3. SOMA [Concomitant]
     Dosage: 250 MG, UNK
  4. AXERT [Concomitant]
     Dosage: 6.25 MG, UNK
  5. CARBAMAZEPIN [Concomitant]
     Dosage: 200 MG, UNK
  6. ECOTRIN [Concomitant]
     Dosage: 325 MG, UNK
  7. VALIUM [Concomitant]
     Dosage: 2 MG, UNK
  8. SEREVENT [Concomitant]
  9. MIDRIN [Concomitant]
  10. VITAMIN E [Concomitant]
  11. AMANTADINE [Concomitant]
     Dosage: 100 MG, UNK
  12. VITAMIN D [Concomitant]

REACTIONS (3)
  - Multiple sclerosis [None]
  - Drug ineffective [None]
  - General physical health deterioration [None]
